FAERS Safety Report 4361953-3 (Version None)
Quarter: 2004Q2

REPORT INFORMATION
  Report Type: 
  Country: None (occurrence: None)
  Receive Date: 20040521
  Receipt Date: 20040206
  Transmission Date: 20050107
  Serious: No
  Sender: FDA-Public Use
  Company Number: US-GLAXOSMITHKLINE-A0497101A

PATIENT
  Age: 35 Year
  Sex: Female

DRUGS (4)
  1. WELLBUTRIN XL [Suspect]
     Indication: DEPRESSION
     Dosage: 300MG PER DAY
     Route: 048
     Dates: start: 20030101
  2. VICODIN [Concomitant]
  3. NASONEX [Concomitant]
  4. ALLEGRA [Concomitant]

REACTIONS (5)
  - AGITATION [None]
  - INSOMNIA [None]
  - LIBIDO INCREASED [None]
  - SMOKER [None]
  - WEIGHT LOSS POOR [None]
